FAERS Safety Report 13790435 (Version 2)
Quarter: 2017Q4

REPORT INFORMATION
  Report Type: Report from Study
  Country: NL (occurrence: NL)
  Receive Date: 20170725
  Receipt Date: 20171011
  Transmission Date: 20180320
  Serious: Yes (Other)
  Sender: FDA-Public Use
  Company Number: NL-AMGEN-NLDSL2017109638

PATIENT
  Age: 68 Year

DRUGS (5)
  1. ELIGARD [Concomitant]
     Active Substance: LEUPROLIDE ACETATE
  2. PREDNISOLON [Concomitant]
     Active Substance: PREDNISOLONE
  3. XGEVA [Suspect]
     Active Substance: DENOSUMAB
     Indication: PROSTATE CANCER METASTATIC
     Dosage: Q4WK
     Route: 065
  4. FUROSEMIDE. [Concomitant]
     Active Substance: FUROSEMIDE
  5. DOCETAXEL. [Concomitant]
     Active Substance: DOCETAXEL

REACTIONS (13)
  - Laboratory test abnormal [Unknown]
  - Renal impairment [Unknown]
  - Paraplegia [Unknown]
  - Gamma-glutamyltransferase increased [Unknown]
  - Hypophagia [Unknown]
  - Decubitus ulcer [Unknown]
  - Dehydration [Unknown]
  - Blood creatinine increased [Unknown]
  - Hypotension [Unknown]
  - Pulmonary embolism [Unknown]
  - Addison^s disease [Unknown]
  - Dyspnoea [Unknown]
  - Normocytic anaemia [Unknown]
